FAERS Safety Report 20615274 (Version 1)
Quarter: 2022Q1

REPORT INFORMATION
  Report Type: Report from Study
  Country: IE (occurrence: IE)
  Receive Date: 20220321
  Receipt Date: 20220321
  Transmission Date: 20220423
  Serious: Yes (Other)
  Sender: FDA-Public Use
  Company Number: IE-JNJFOC-20220202584

PATIENT
  Age: 60 Year
  Sex: Female

DRUGS (5)
  1. STELARA [Suspect]
     Active Substance: USTEKINUMAB
     Indication: Crohn^s disease
     Route: 042
     Dates: start: 20211217
  2. STELARA [Suspect]
     Active Substance: USTEKINUMAB
     Route: 058
  3. ROSUVASTATIN [Concomitant]
     Active Substance: ROSUVASTATIN
     Route: 050
  4. CALTRATE [Concomitant]
     Active Substance: CALCIUM CARBONATE
     Route: 050
  5. ESTRADIOL [Concomitant]
     Active Substance: ESTRADIOL
     Route: 050

REACTIONS (2)
  - Intestinal operation [Unknown]
  - Malaise [Not Recovered/Not Resolved]
